FAERS Safety Report 17122233 (Version 4)
Quarter: 2020Q3

REPORT INFORMATION
  Report Type: Spontaneous
  Country: IN (occurrence: IN)
  Receive Date: 20191206
  Receipt Date: 20200818
  Transmission Date: 20201102
  Serious: Yes (Other)
  Sender: FDA-Public Use
  Company Number: IN-PFIZER INC-2019524597

PATIENT
  Age: 74 Year
  Sex: Female

DRUGS (8)
  1. XGEVA [Concomitant]
     Active Substance: DENOSUMAB
     Dosage: 120 MG, MONTHLY
     Route: 058
  2. PALBACE [Suspect]
     Active Substance: PALBOCICLIB
     Indication: BREAST CANCER METASTATIC
     Dosage: 125 MG, CYCLIC (ONCE A DAY 7 DAYS GAP 21DAYS)
     Route: 048
     Dates: start: 20190226, end: 2019
  3. SHELCAL [Concomitant]
     Active Substance: CALCIUM CARBONATE\CHOLECALCIFEROL
     Dosage: UNK, 2X/DAY
  4. VALACYCLOVIR [VALACICLOVIR HYDROCHLORIDE] [Concomitant]
     Active Substance: VALACYCLOVIR HYDROCHLORIDE
     Dosage: 1 G, 3X/DAY
  5. PALBACE [Suspect]
     Active Substance: PALBOCICLIB
     Dosage: 100 MG, CYCLIC (ONCE A DAY 7 DAYS GAP 21DAYS)
     Route: 048
     Dates: start: 2019
  6. PARALDIM [Concomitant]
     Dosage: UNK, 1X/DAY (FOR 30 DAYS)
  7. FULVESTRANT. [Concomitant]
     Active Substance: FULVESTRANT
     Dosage: UNKNOWN
  8. LETROZOLE. [Concomitant]
     Active Substance: LETROZOLE
     Dosage: 2.5 MG, CYCLIC (ONCE A DAY, 20 DAYS)

REACTIONS (6)
  - Lymphocyte count decreased [Unknown]
  - Neoplasm progression [Unknown]
  - Cytopenia [Unknown]
  - Pyrexia [Recovered/Resolved]
  - Back pain [Unknown]
  - Abdominal pain upper [Unknown]

NARRATIVE: CASE EVENT DATE: 2019
